FAERS Safety Report 8789817 (Version 1)
Quarter: 2012Q4

REPORT INFORMATION
  Report Type: 
  Country: JP (occurrence: JP)
  Receive Date: 20120917
  Receipt Date: 20120917
  Transmission Date: 20130627
  Serious: Yes (Death)
  Sender: FDA-Public Use
  Company Number: JP-ASTRAZENECA-2012SE71876

PATIENT
  Age: 61 Year
  Sex: Female
  Weight: 49 kg

DRUGS (2)
  1. ECARD COMBINATION TABLETS HD [Suspect]
     Indication: HYPERTENSION
     Route: 048
     Dates: start: 20091021, end: 201104
  2. UNSPECIFIED INGREDIENT [Concomitant]
     Indication: MENOPAUSAL SYMPTOMS
     Route: 048
     Dates: start: 20100317

REACTIONS (1)
  - Completed suicide [Fatal]
